FAERS Safety Report 6813468-8 (Version None)
Quarter: 2010Q3

REPORT INFORMATION
  Report Type: 
  Country: None (occurrence: None)
  Receive Date: 20100701
  Receipt Date: 20100623
  Transmission Date: 20110219
  Serious: Yes (Other)
  Sender: FDA-Public Use
  Company Number: US-PFIZER INC-2010076602

PATIENT
  Sex: Female
  Weight: 78.005 kg

DRUGS (14)
  1. CHANTIX [Suspect]
     Indication: SMOKING CESSATION THERAPY
     Dosage: 0.5 MG, 1X/DAY
     Route: 048
     Dates: start: 20060801, end: 20070101
  2. CHANTIX [Suspect]
     Dosage: UNK
     Dates: start: 20070701
  3. CHANTIX [Suspect]
     Dosage: 0.5 MG, 1X/DAY
     Dates: start: 20100601
  4. AMLODIPINE BESILATE [Suspect]
     Dosage: UNK
     Route: 048
  5. NICOTINE [Concomitant]
     Dosage: UNK
     Route: 062
     Dates: start: 20070101, end: 20070101
  6. ACETYLSALICYLIC ACID [Concomitant]
     Indication: CARDIAC DISORDER
     Dosage: 81 MG, 1X/DAY
     Route: 048
  7. ALDACTONE [Concomitant]
     Indication: HYPERTENSION
     Dosage: 25 MG, UNK
     Route: 048
  8. PROTONIX [Concomitant]
     Indication: BARRETT'S OESOPHAGUS
     Dosage: 40 MG, 1X/DAY
     Route: 048
  9. LISINOPRIL [Concomitant]
     Indication: HYPERTENSION
     Dosage: UNK
     Route: 048
  10. CELEBREX [Concomitant]
     Indication: ANKYLOSING SPONDYLITIS
     Dosage: 200 MG, 1X/DAY
     Route: 048
  11. CELEBREX [Concomitant]
     Indication: BACK PAIN
  12. HYDROCHLOROTHIAZIDE [Concomitant]
     Dosage: 12.5 MG, 1X/DAY
     Route: 048
  13. VITAMIN C [Concomitant]
     Dosage: UNK
  14. PRENATAL VITAMINS [Concomitant]
     Dosage: UNK

REACTIONS (4)
  - ASTHMA [None]
  - BLOOD PRESSURE DECREASED [None]
  - CHRONIC OBSTRUCTIVE PULMONARY DISEASE [None]
  - HYPERTENSION [None]
